FAERS Safety Report 16833181 (Version 3)
Quarter: 2019Q4

REPORT INFORMATION
  Report Type: Spontaneous
  Country: AU (occurrence: AU)
  Receive Date: 20190920
  Receipt Date: 20191022
  Transmission Date: 20200122
  Serious: Yes (Hospitalization, Other)
  Sender: FDA-Public Use
  Company Number: AU-ROCHE-2406038

PATIENT
  Age: 29 Year
  Sex: Female

DRUGS (4)
  1. PARACETAMOL [Concomitant]
     Active Substance: ACETAMINOPHEN
     Route: 048
  2. METHYLPREDNISOLONE. [Concomitant]
     Active Substance: METHYLPREDNISOLONE
     Route: 042
  3. OCREVUS [Suspect]
     Active Substance: OCRELIZUMAB
     Indication: WHITE MATTER LESION
     Route: 065
     Dates: start: 20180518
  4. LORATADINE. [Concomitant]
     Active Substance: LORATADINE
     Dosage: DOSE: 10-20MG
     Route: 048

REACTIONS (5)
  - Gait disturbance [Unknown]
  - Viral rash [Unknown]
  - Visual impairment [Unknown]
  - Multiple sclerosis relapse [Unknown]
  - Infusion related reaction [Unknown]

NARRATIVE: CASE EVENT DATE: 20180523
